FAERS Safety Report 10890598 (Version 1)
Quarter: 2015Q1

REPORT INFORMATION
  Report Type: Spontaneous
  Country: US (occurrence: US)
  Receive Date: 20150305
  Receipt Date: 20150305
  Transmission Date: 20150721
  Serious: No
  Sender: FDA-Public Use
  Company Number: US-ELI_LILLY_AND_COMPANY-US201503001407

PATIENT
  Sex: Male

DRUGS (2)
  1. INSULIN HUMAN [Concomitant]
     Active Substance: INSULIN HUMAN
  2. HUMALOG [Suspect]
     Active Substance: INSULIN LISPRO
     Indication: TYPE 2 DIABETES MELLITUS
     Dosage: 4 U, TID
     Route: 065
     Dates: start: 2013

REACTIONS (2)
  - Blood glucose increased [Unknown]
  - Underdose [Unknown]
